FAERS Safety Report 14327323 (Version 1)
Quarter: 2017Q4

REPORT INFORMATION
  Report Type: Spontaneous
  Country: US (occurrence: US)
  Receive Date: 20171227
  Receipt Date: 20171227
  Transmission Date: 20180321
  Serious: No
  Sender: FDA-Public Use
  Company Number: US-PFIZER INC-2017543594

PATIENT
  Age: 38 Year
  Sex: Male

DRUGS (5)
  1. DILANTIN [Suspect]
     Active Substance: PHENYTOIN
     Dosage: UNK
  2. VALPROIC ACID. [Suspect]
     Active Substance: VALPROIC ACID
     Dosage: UNK
  3. LACOSAMIDE. [Suspect]
     Active Substance: LACOSAMIDE
     Dosage: UNK
  4. TOPIRAMATE. [Suspect]
     Active Substance: TOPIRAMATE
     Dosage: UNK
  5. FELBAMATE. [Suspect]
     Active Substance: FELBAMATE
     Dosage: UNK

REACTIONS (3)
  - Drug ineffective [Unknown]
  - Dizziness [Unknown]
  - Balance disorder [Unknown]
